FAERS Safety Report 10678786 (Version 1)
Quarter: 2014Q4

REPORT INFORMATION
  Report Type: Spontaneous
  Country: US (occurrence: None)
  Receive Date: 20141211
  Receipt Date: 20141211
  Transmission Date: 20150529
  Serious: Yes (Hospitalization)
  Sender: FDA-Public Use
  Company Number: FK201401574

PATIENT
  Age: 58 Year
  Sex: Female
  Weight: 74.92 kg

DRUGS (19)
  1. PRILOSEC (OMEPRAZOLE) [Concomitant]
     Active Substance: OMEPRAZOLE MAGNESIUM
  2. COREG [Concomitant]
     Active Substance: CARVEDILOL
  3. REGLAN [Concomitant]
     Active Substance: METOCLOPRAMIDE HYDROCHLORIDE
  4. SINGULAIR  (MONTELUKAST SODIUM) [Concomitant]
  5. INVESTIGATIONAL DRUG [Suspect]
     Active Substance: INVESTIGATIONAL PRODUCT
     Indication: NON-SMALL CELL LUNG CANCER
     Route: 042
     Dates: start: 20140107
  6. LASIX [Concomitant]
     Active Substance: FUROSEMIDE
  7. PRAVASTATIN [Concomitant]
     Active Substance: PRAVASTATIN\PRAVASTATIN SODIUM
  8. TAXOL [Suspect]
     Active Substance: PACLITAXEL
     Indication: NON-SMALL CELL LUNG CANCER
  9. LISINOPRIL (LISINOPRIL) [Concomitant]
     Active Substance: LISINOPRIL
  10. LORTAB (LORTAB) [Concomitant]
  11. BABY ASPIRIN (ACETYLSALICYLIC ACID) [Concomitant]
     Active Substance: ASPIRIN
  12. ALBUTEROL (SALBUTAMOL) [Concomitant]
     Active Substance: ALBUTEROL
  13. CARVEDILOL (CARVEDILOL) [Concomitant]
     Active Substance: CARVEDILOL
  14. POTASSIUM (POTASSIUM) [Concomitant]
     Active Substance: POTASSIUM
  15. SPIRIVA (TIOTROPIUM BROMIDE) [Concomitant]
  16. CARBOPLATIN INJECTION (CARBOPLATIN) [Suspect]
     Active Substance: CARBOPLATIN
     Indication: NON-SMALL CELL LUNG CANCER
  17. ABILIFY [Concomitant]
     Active Substance: ARIPIPRAZOLE
  18. ADVAIR (SERETIDE) [Concomitant]
  19. PAXIL (PIROXICAM) [Concomitant]

REACTIONS (2)
  - Vomiting [None]
  - Nausea [None]

NARRATIVE: CASE EVENT DATE: 20140326
